FAERS Safety Report 15461640 (Version 1)
Quarter: 2018Q4

REPORT INFORMATION
  Report Type: Report from Study
  Country: DE (occurrence: DE)
  Receive Date: 20181003
  Receipt Date: 20181003
  Transmission Date: 20190204
  Serious: Yes (Other)
  Sender: FDA-Public Use
  Company Number: DE-SHIRE-DE201836900

PATIENT

DRUGS (5)
  1. REVESTIVE [Suspect]
     Active Substance: TEDUGLUTIDE
     Indication: SHORT-BOWEL SYNDROME
     Dosage: 0.22 MG, 1X/DAY:QD
     Route: 058
     Dates: start: 20180803
  2. PANTOZOL [Concomitant]
     Active Substance: PANTOPRAZOLE SODIUM
     Indication: SHORT-BOWEL SYNDROME
  3. MORPHINE [Concomitant]
     Active Substance: MORPHINE
     Indication: SHORT-BOWEL SYNDROME
  4. CAPROS AKUT [Concomitant]
     Indication: SHORT-BOWEL SYNDROME
  5. DOXEPIN [Concomitant]
     Active Substance: DOXEPIN
     Indication: SHORT-BOWEL SYNDROME

REACTIONS (2)
  - Stoma site oedema [Unknown]
  - Stoma site haemorrhage [Unknown]

NARRATIVE: CASE EVENT DATE: 201809
